FAERS Safety Report 14047878 (Version 1)
Quarter: 2017Q4

REPORT INFORMATION
  Report Type: Report from Study
  Country: CL (occurrence: CL)
  Receive Date: 20171005
  Receipt Date: 20171005
  Transmission Date: 20180321
  Serious: Yes (Hospitalization, Other)
  Sender: FDA-Public Use
  Company Number: CL-ACTELION-A-NJ2017-160525

PATIENT
  Age: 32 Year
  Sex: Female

DRUGS (1)
  1. VENTAVIS [Suspect]
     Active Substance: ILOPROST
     Indication: PULMONARY HYPERTENSION
     Dosage: 1 DF, 7ID
     Route: 055
     Dates: start: 20160603

REACTIONS (4)
  - Tachycardia [Unknown]
  - N-terminal prohormone brain natriuretic peptide [Unknown]
  - Pulmonary hypertension [Unknown]
  - Syncope [Recovered/Resolved]

NARRATIVE: CASE EVENT DATE: 20170913
